FAERS Safety Report 7637667-0 (Version None)
Quarter: 2011Q3

REPORT INFORMATION
  Report Type: 
  Country: None (occurrence: None)
  Receive Date: 20110726
  Receipt Date: 20110511
  Transmission Date: 20111222
  Serious: No
  Sender: FDA-Public Use
  Company Number: US-AMGEN-USASP2011024695

PATIENT
  Age: 61 Year
  Sex: Female
  Weight: 58.957 kg

DRUGS (1)
  1. PROCRIT [Suspect]
     Indication: ANAEMIA
     Dosage: UNK
     Route: 058
     Dates: start: 20100501

REACTIONS (2)
  - WEIGHT INCREASED [None]
  - DECREASED APPETITE [None]
